FAERS Safety Report 23426326 (Version 1)
Quarter: 2024Q1

REPORT INFORMATION
  Report Type: Spontaneous
  Country: GB (occurrence: GB)
  Receive Date: 20240122
  Receipt Date: 20240122
  Transmission Date: 20240409
  Serious: Yes (Hospitalization, Other)
  Sender: FDA-Public Use
  Company Number: None

PATIENT
  Age: 71 Year
  Sex: Male
  Weight: 87 kg

DRUGS (13)
  1. OMEPRAZOLE [Suspect]
     Active Substance: OMEPRAZOLE
     Indication: Ill-defined disorder
     Route: 065
     Dates: start: 20240117
  2. ATORVASTATIN [Concomitant]
     Active Substance: ATORVASTATIN
     Indication: Ill-defined disorder
     Dosage: ONE TO BE TAKEN DAILY TO LOWER CHOLESTEROL
     Route: 065
     Dates: start: 20230114
  3. CARBOXYMETHYLCELLULOSE [Concomitant]
     Active Substance: CARBOXYMETHYLCELLULOSE
     Indication: Ill-defined disorder
     Dosage: USE AS REQUIRED FOR DRY EYES
     Route: 065
     Dates: start: 20230114
  4. CYCLIZINE [Concomitant]
     Active Substance: CYCLIZINE
     Indication: Ill-defined disorder
     Dosage: ONE TO BE TAKEN UP TO THREE TIMES DAILY WHEN RE...
     Route: 065
     Dates: start: 20231213, end: 20231220
  5. FLUCLOXACILLIN [Concomitant]
     Active Substance: FLUCLOXACILLIN
     Indication: Ill-defined disorder
     Dosage: TAKE ONE 4 TIMES/DAY (DOUBLE UP FIRST TWO DOSES)
     Route: 065
     Dates: start: 20231019, end: 20231026
  6. FOLIC ACID [Concomitant]
     Active Substance: FOLIC ACID
     Indication: Ill-defined disorder
     Dosage: ONE TABLET ONCE DAILY APRT FROM DAY OF METHOTRE...
     Route: 065
     Dates: start: 20230114
  7. CYCLOSPORINE [Concomitant]
     Active Substance: CYCLOSPORINE
     Indication: Ill-defined disorder
     Dosage: ONE DROP AT NIGHT
     Route: 065
     Dates: start: 20230906
  8. LEVOTHYROXINE [Concomitant]
     Active Substance: LEVOTHYROXINE\LEVOTHYROXINE SODIUM
     Indication: Ill-defined disorder
     Dosage: ONE TABLET IN THE MORNING FOR UNDERACTIVE THYRO...
     Route: 065
     Dates: start: 20230114
  9. METHOTREXATE [Concomitant]
     Active Substance: METHOTREXATE
     Indication: Ill-defined disorder
     Dosage: 20MG (EIGHT TABLETS) TO BE TAKEN WEEKLY
     Route: 065
     Dates: start: 20230114
  10. OMEPRAZOLE [Concomitant]
     Active Substance: OMEPRAZOLE
     Indication: Ill-defined disorder
     Dosage: ONE CAPSULE DAILY TO PREVENT INDIGESTION
     Route: 065
     Dates: start: 20231031, end: 20240117
  11. PREGABALIN [Concomitant]
     Active Substance: PREGABALIN
     Indication: Ill-defined disorder
     Dosage: TAKE TWO OR THREE CAPSULES TWICE DAILY
     Route: 065
     Dates: start: 20230114
  12. SULFASALAZINE [Concomitant]
     Active Substance: SULFASALAZINE
     Indication: Ill-defined disorder
     Dosage: TAKE 2 TABLETS TWICE A DAY
     Route: 065
     Dates: start: 20230114
  13. TADALAFIL [Concomitant]
     Active Substance: TADALAFIL
     Indication: Ill-defined disorder
     Dosage: ONE OR TWO AS DIRECTED.
     Route: 065
     Dates: start: 20230114

REACTIONS (1)
  - Acute kidney injury [Recovered/Resolved]

NARRATIVE: CASE EVENT DATE: 20240117
